FAERS Safety Report 15385765 (Version 1)
Quarter: 2018Q3

REPORT INFORMATION
  Report Type: Spontaneous
  Country: US (occurrence: US)
  Receive Date: 20180907
  Receipt Date: 20180907
  Transmission Date: 20181010
  Serious: Yes (Disabling)
  Sender: FDA-Public Use
  Company Number: None

PATIENT
  Age: 70 Year
  Weight: 74.25 kg

DRUGS (9)
  1. PROLIA [Concomitant]
     Active Substance: DENOSUMAB
  2. VITAMIN D3 [Concomitant]
     Active Substance: CHOLECALCIFEROL
  3. MOBIC [Concomitant]
     Active Substance: MELOXICAM
  4. CALCIUM [Concomitant]
     Active Substance: CALCIUM
  5. XJELZAN [Concomitant]
  6. VITAMIN [Concomitant]
     Active Substance: VITAMINS
  7. LISINIPRIL [Concomitant]
     Active Substance: LISINOPRIL
  8. PROLIA [Suspect]
     Active Substance: DENOSUMAB
     Indication: BONE DENSITY ABNORMAL
     Dosage: ?          QUANTITY:1 INJECTION(S);OTHER FREQUENCY:6 MONTH;?
     Route: 058
     Dates: start: 20180629
  9. TRAMMADOL [Concomitant]

REACTIONS (1)
  - Blood parathyroid hormone increased [None]

NARRATIVE: CASE EVENT DATE: 20180828
